FAERS Safety Report 6851939-9 (Version None)
Quarter: 2010Q3

REPORT INFORMATION
  Report Type: 
  Country: None (occurrence: None)
  Receive Date: 20100717
  Receipt Date: 20071102
  Transmission Date: 20110219
  Serious: Yes (Other)
  Sender: FDA-Public Use
  Company Number: US-PFIZER INC-2007094034

PATIENT
  Sex: Male
  Weight: 86.2 kg

DRUGS (1)
  1. CHANTIX [Suspect]
     Indication: SMOKING CESSATION THERAPY
     Route: 048
     Dates: start: 20071024, end: 20071029

REACTIONS (9)
  - ALTERED STATE OF CONSCIOUSNESS [None]
  - BODY TEMPERATURE FLUCTUATION [None]
  - DEHYDRATION [None]
  - DEREALISATION [None]
  - FEELING ABNORMAL [None]
  - INSOMNIA [None]
  - MOOD SWINGS [None]
  - PANIC REACTION [None]
  - POLLAKIURIA [None]
